FAERS Safety Report 12342178 (Version 1)
Quarter: 2016Q2

REPORT INFORMATION
  Report Type: Spontaneous
  Country: US (occurrence: US)
  Receive Date: 20160506
  Receipt Date: 20160506
  Transmission Date: 20160815
  Serious: No
  Sender: FDA-Public Use
  Company Number: US-ANACOR-2016ANA00097

PATIENT
  Age: 74 Year
  Sex: Female
  Weight: 62.59 kg

DRUGS (5)
  1. KERYDIN [Suspect]
     Active Substance: TAVABOROLE
     Dosage: 1 GTT, 1X/DAY
     Route: 061
     Dates: start: 20151120, end: 201512
  2. KCL [Concomitant]
     Active Substance: POTASSIUM CHLORIDE
     Dosage: 10 MEQ, 2X/DAY
  3. TORSEMIDE. [Concomitant]
     Active Substance: TORSEMIDE
     Dosage: 20 MG, 1X/DAY
  4. OMEPRAZOLE. [Concomitant]
     Active Substance: OMEPRAZOLE
     Dosage: 40 MG, 1X/DAY
  5. SPIRONOLACTONE. [Concomitant]
     Active Substance: SPIRONOLACTONE
     Dosage: 50 MG, 1X/DAY

REACTIONS (4)
  - Nail disorder [Recovering/Resolving]
  - Onychoclasis [Recovering/Resolving]
  - Nail discolouration [Recovering/Resolving]
  - Drug administered at inappropriate site [Recovered/Resolved]

NARRATIVE: CASE EVENT DATE: 20151120
